FAERS Safety Report 8437450-2 (Version None)
Quarter: 2012Q2

REPORT INFORMATION
  Report Type: 
  Country: None (occurrence: None)
  Receive Date: 20120614
  Receipt Date: 20120328
  Transmission Date: 20120825
  Serious: No
  Sender: FDA-Public Use
  Company Number: US-AMGEN-USASP2012019874

PATIENT
  Age: 76 Year
  Sex: Female

DRUGS (12)
  1. ASPIRIN [Concomitant]
     Dosage: UNK UNK, QD
  2. MULTI-VITAMINS [Concomitant]
     Dosage: UNK UNK, QD
  3. CALCIUM WITH VITAMIN D [Concomitant]
     Dosage: UNK UNK, QD
  4. DIOVAN [Concomitant]
     Dosage: 1 MG, QD
  5. NEURONTIN [Concomitant]
     Indication: NEUROPATHY PERIPHERAL
     Dosage: 3 MG, QD
  6. SYNTHROID [Concomitant]
     Dosage: 1 MG, QD
  7. PROTONIX [Concomitant]
     Dosage: UNK UNK, QD
     Dates: end: 20120301
  8. PLAVIX [Concomitant]
     Indication: CAROTID ARTERY DISEASE
     Dosage: UNK UNK, QD
     Dates: start: 20110101
  9. PROLIA [Suspect]
     Indication: OSTEOPOROSIS POSTMENOPAUSAL
     Dosage: 60 MG, Q6MO
     Dates: start: 20110901
  10. PRAVACHOL [Concomitant]
     Dosage: 1 MG, QD
  11. RYTHMOL [Concomitant]
     Indication: TACHYCARDIA
     Dosage: 3 MG, QD
  12. PEPCID [Concomitant]
     Dosage: UNK
     Dates: start: 20120301, end: 20120301

REACTIONS (2)
  - HYPERAESTHESIA [None]
  - ECZEMA [None]
